FAERS Safety Report 8638400 (Version 2)
Quarter: 2012Q4

REPORT INFORMATION
  Report Type: 
  Country: CA (occurrence: CA)
  Receive Date: 20120627
  Receipt Date: 20121212
  Transmission Date: 20130627
  Serious: Yes (Other)
  Sender: FDA-Public Use
  Company Number: CA-GLAXOSMITHKLINE-A0981875A

PATIENT
  Sex: Female

DRUGS (20)
  1. TYKERB [Suspect]
     Indication: BREAST CANCER METASTATIC
     Dosage: 1250MG Per day
     Route: 048
     Dates: start: 20110201
  2. XGEVA [Concomitant]
     Route: 065
  3. CLOBAZAM [Concomitant]
     Dosage: 10MG At night
     Route: 065
  4. CIPRALEX [Concomitant]
     Dosage: 20MG Per day
     Route: 065
  5. ZOPICLONE [Concomitant]
     Dosage: 7.5MG At night
     Route: 065
  6. RAMIPRIL [Concomitant]
     Dosage: 5MG Per day
     Route: 065
  7. DILANTIN [Concomitant]
     Dosage: 75MG Twice per day
     Route: 065
  8. METOPROLOL [Concomitant]
     Dosage: 25MG Twice per day
     Route: 065
  9. NEXIUM [Concomitant]
     Dosage: 40MG Per day
     Route: 065
  10. DEXAMETHASONE [Concomitant]
     Dosage: 4MG Twice per day
     Route: 065
  11. DIGOXIN [Concomitant]
     Dosage: .125MG Per day
     Route: 065
  12. METHOTREXATE [Concomitant]
     Route: 065
  13. ATIVAN [Concomitant]
     Route: 065
  14. PERCOCET [Concomitant]
     Route: 065
  15. IMODIUM [Concomitant]
     Route: 065
  16. VITAMIN D [Concomitant]
     Route: 065
  17. CALCIUM [Concomitant]
     Route: 065
  18. VITAMIN B12 [Concomitant]
     Route: 065
  19. XELODA [Concomitant]
     Route: 065
  20. ANALGESICS [Concomitant]

REACTIONS (3)
  - Blindness [Not Recovered/Not Resolved]
  - Ophthalmoplegia [Not Recovered/Not Resolved]
  - Bone cancer [Not Recovered/Not Resolved]
